FAERS Safety Report 9226485 (Version 2)
Quarter: 2013Q3

REPORT INFORMATION
  Report Type: Report from Study
  Country: KR (occurrence: KR)
  Receive Date: 20130411
  Receipt Date: 20130719
  Transmission Date: 20140515
  Serious: Yes (Hospitalization)
  Sender: FDA-Public Use
  Company Number: KR-BRISTOL-MYERS SQUIBB COMPANY-18758144

PATIENT
  Sex: Female

DRUGS (2)
  1. BYETTA PEN DISPOSABLE [Suspect]
     Indication: TYPE 2 DIABETES MELLITUS
     Dosage: DOSE INCREASED:10MCG, ON24MAR13
     Route: 058
     Dates: start: 20130221
  2. INSULIN [Concomitant]

REACTIONS (2)
  - Oedema [Recovering/Resolving]
  - Hypoglycaemia [Recovering/Resolving]
